FAERS Safety Report 13022547 (Version 3)
Quarter: 2018Q1

REPORT INFORMATION
  Report Type: Report from Study
  Country: US (occurrence: US)
  Receive Date: 20161213
  Receipt Date: 20180104
  Transmission Date: 20180508
  Serious: No
  Sender: FDA-Public Use
  Company Number: PHEH2016US031882

PATIENT
  Sex: Female

DRUGS (3)
  1. ILARIS [Suspect]
     Active Substance: CANAKINUMAB
     Indication: CRYOPYRIN ASSOCIATED PERIODIC SYNDROME
     Dosage: 600 MG, EVERY 3 WEEKS
     Route: 058
  2. ILARIS [Suspect]
     Active Substance: CANAKINUMAB
     Dosage: EVERY 3 WEEKS
     Route: 058
     Dates: start: 20171222
  3. ILARIS [Suspect]
     Active Substance: CANAKINUMAB
     Dosage: EVERY 3 WEEKS
     Route: 058
     Dates: start: 20171115

REACTIONS (5)
  - Inappropriate schedule of drug administration [Unknown]
  - Malaise [Unknown]
  - Cough [Unknown]
  - Rhinorrhoea [Unknown]
  - Dizziness [Unknown]
